FAERS Safety Report 24409872 (Version 1)
Quarter: 2024Q4

REPORT INFORMATION
  Report Type: Spontaneous
  Country: CA (occurrence: CA)
  Receive Date: 20241008
  Receipt Date: 20241008
  Transmission Date: 20250115
  Serious: Yes (Death, Life-Threatening, Hospitalization)
  Sender: AUROBINDO
  Company Number: CA-AUROBINDO-AUR-APL-2024-048627

PATIENT
  Age: 3 Year
  Sex: Female

DRUGS (4)
  1. IRINOTECAN HYDROCHLORIDE [Suspect]
     Active Substance: IRINOTECAN HYDROCHLORIDE
     Indication: Neuroblastoma recurrent
     Dosage: UNK
     Route: 065
  2. DASATINIB [Concomitant]
     Active Substance: DASATINIB
     Indication: Neuroblastoma recurrent
     Dosage: UNK
     Route: 065
  3. RAPAMUNE [Concomitant]
     Active Substance: SIROLIMUS
     Indication: Neuroblastoma recurrent
     Dosage: UNK UNK, ONCE A DAY
     Route: 065
  4. TEMOZOLOMIDE [Concomitant]
     Active Substance: TEMOZOLOMIDE
     Indication: Neuroblastoma recurrent
     Dosage: UNK
     Route: 065

REACTIONS (6)
  - Dyspnoea [Fatal]
  - Somnolence [Fatal]
  - Cancer pain [Fatal]
  - Neoplasm progression [Fatal]
  - Pyrexia [Fatal]
  - Off label use [Fatal]
